FAERS Safety Report 7519800-4 (Version None)
Quarter: 2011Q2

REPORT INFORMATION
  Report Type: 
  Country: None (occurrence: None)
  Receive Date: 20110602
  Receipt Date: 20100609
  Transmission Date: 20111010
  Serious: No
  Sender: FDA-Public Use
  Company Number: US-MYLANLABS-BN-1-22959397

PATIENT
  Age: 50 Year
  Sex: Female

DRUGS (9)
  1. VITAMIN D [Concomitant]
  2. ESTROGENIC SUBSTANCE [Concomitant]
  3. ELAVIL [Concomitant]
  4. CALCIUM CARBONATE [Concomitant]
  5. AMOXICILLIN [Concomitant]
  6. RIMSO-50 [Suspect]
     Dosage: 50 ML, ONCE
     Route: 043
     Dates: start: 20100603, end: 20100603
  7. MILK OF MAGNESIA TAB [Concomitant]
  8. PROBIOTICA [Concomitant]
  9. FLEXERIL [Concomitant]

REACTIONS (5)
  - POLLAKIURIA [None]
  - DISCOMFORT [None]
  - URETHRAL PAIN [None]
  - URETHRAL DILATATION [None]
  - FUNGAL INFECTION [None]
